FAERS Safety Report 16993957 (Version 4)
Quarter: 2020Q3

REPORT INFORMATION
  Report Type: Report from Study
  Country: US (occurrence: US)
  Receive Date: 20191105
  Receipt Date: 20200708
  Transmission Date: 20201102
  Serious: Yes (Other)
  Sender: FDA-Public Use
  Company Number: PHHY2015US120511

PATIENT
  Age: 48 Year
  Sex: Female
  Weight: 71.3 kg

DRUGS (3)
  1. MOMETASONE [Concomitant]
     Active Substance: MOMETASONE
     Indication: PSORIASIS
     Dosage: UNK, BID
     Route: 048
     Dates: start: 20140114
  2. KEPPRA [Suspect]
     Active Substance: LEVETIRACETAM
     Indication: SEIZURE
     Dosage: UNK
     Route: 065
     Dates: start: 20150716, end: 20151016
  3. GILENYA [Suspect]
     Active Substance: FINGOLIMOD HYDROCHLORIDE
     Indication: MULTIPLE SCLEROSIS
     Dosage: UNK, QD
     Route: 048
     Dates: start: 20121121

REACTIONS (5)
  - Paraesthesia [Not Recovered/Not Resolved]
  - Nausea [Not Recovered/Not Resolved]
  - Tension headache [Recovered/Resolved]
  - Simple partial seizures [Recovering/Resolving]
  - Sensory disturbance [Unknown]

NARRATIVE: CASE EVENT DATE: 20150529
